FAERS Safety Report 9626120 (Version 3)
Quarter: 2013Q4

REPORT INFORMATION
  Report Type: Report from Study
  Country: CA (occurrence: CA)
  Receive Date: 20131016
  Receipt Date: 20131018
  Transmission Date: 20140711
  Serious: Yes (Hospitalization, Other)
  Sender: FDA-Public Use
  Company Number: CA-ROCHE-1254930

PATIENT
  Age: 56 Year
  Sex: Male
  Weight: 124.3 kg

DRUGS (16)
  1. ACTEMRA [Suspect]
     Indication: RHEUMATOID ARTHRITIS
     Route: 042
     Dates: start: 201303, end: 20130725
  2. ACTEMRA [Suspect]
     Dosage: FIRST RPAP DOSE
     Route: 042
     Dates: start: 20130725
  3. ACTEMRA [Suspect]
     Route: 042
     Dates: start: 20131008
  4. CHLORTHALIDONE [Concomitant]
  5. ZOPICLONE [Concomitant]
  6. MYLAN-GABAPENTIN [Concomitant]
  7. MYLAN IRBESARTAN [Concomitant]
  8. RAN-RABEPRAZOLE [Concomitant]
  9. MYLAN-METFORMIN [Concomitant]
  10. OXYNEO [Concomitant]
  11. TEVA HYDROMORPHONE [Concomitant]
  12. HUMALOG [Concomitant]
  13. TEVA-SALBUTAMOL [Concomitant]
  14. MYLAN-TRAZODONE [Concomitant]
  15. COSOPT [Concomitant]
  16. ORENCIA [Concomitant]

REACTIONS (6)
  - Arterial occlusive disease [Unknown]
  - Arthralgia [Not Recovered/Not Resolved]
  - Tooth fracture [Not Recovered/Not Resolved]
  - Pain in extremity [Not Recovered/Not Resolved]
  - Dysphonia [Unknown]
  - Malaise [Unknown]
